FAERS Safety Report 5664912-3 (Version None)
Quarter: 2008Q1

REPORT INFORMATION
  Report Type: 
  Country: None (occurrence: None)
  Receive Date: 20080314
  Receipt Date: 20080304
  Transmission Date: 20080703
  Serious: Yes (Other)
  Sender: FDA-Public Use
  Company Number: CA-PFIZER INC-2008007396

PATIENT
  Sex: Female
  Weight: 46.7 kg

DRUGS (5)
  1. CHANTIX [Suspect]
     Indication: SMOKING CESSATION THERAPY
     Route: 048
  2. AVAPRO [Concomitant]
  3. LASIX [Concomitant]
  4. PROPAFENONE HYDROCHLORIDE [Concomitant]
  5. LANOXIN [Concomitant]

REACTIONS (5)
  - CONSTIPATION [None]
  - DIZZINESS [None]
  - DYSPNOEA [None]
  - HEADACHE [None]
  - LABYRINTHITIS [None]
